FAERS Safety Report 6826046-1 (Version None)
Quarter: 2010Q3

REPORT INFORMATION
  Report Type: 
  Country: None (occurrence: None)
  Receive Date: 20100706
  Receipt Date: 20100623
  Transmission Date: 20110219
  Serious: Yes (Disabling, Other)
  Sender: FDA-Public Use
  Company Number: 1-23169105

PATIENT
  Sex: Female

DRUGS (1)
  1. METOCLOPRAMIDE [Suspect]
     Dosage: ORAL
     Route: 048
     Dates: start: 20060101, end: 20071001

REACTIONS (11)
  - ACTIVITIES OF DAILY LIVING IMPAIRED [None]
  - ANXIETY [None]
  - ASTHENIA [None]
  - DYSARTHRIA [None]
  - DYSKINESIA [None]
  - DYSPHAGIA [None]
  - EMOTIONAL DISORDER [None]
  - EMOTIONAL DISTRESS [None]
  - INJURY [None]
  - OROMANDIBULAR DYSTONIA [None]
  - TREMOR [None]
